FAERS Safety Report 9045102 (Version 1)
Quarter: 2013Q1

REPORT INFORMATION
  Report Type: Report from Study
  Country: US (occurrence: US)
  Receive Date: 20130130
  Receipt Date: 20130130
  Transmission Date: 20140127
  Serious: Yes (Other)
  Sender: FDA-Public Use
  Company Number: US-ABBOTT-12P-163-0962053-00

PATIENT
  Age: 55 None
  Sex: Male
  Weight: 111.23 kg

DRUGS (14)
  1. HUMIRA 40 MG/0.8 ML PEN [Suspect]
     Indication: CROHN^S DISEASE
     Dosage: ONE TIME DOSE
     Route: 058
     Dates: start: 20120322, end: 20120322
  2. HUMIRA 40 MG/0.8 ML PEN [Suspect]
     Dosage: ONE TIME DOSE
     Route: 058
     Dates: start: 20120405, end: 20120405
  3. HUMIRA 40 MG/0.8 ML PEN [Suspect]
     Route: 058
     Dates: start: 20120419
  4. LOVENOX [Concomitant]
     Indication: DEEP VEIN THROMBOSIS
     Route: 058
     Dates: start: 20120604
  5. AZATHIOPRINE [Concomitant]
     Indication: CROHN^S DISEASE
  6. ENTOCORT [Concomitant]
     Indication: CROHN^S DISEASE
  7. FOLIC ACID [Concomitant]
     Indication: PRODUCT USED FOR UNKNOWN INDICATION
  8. VITAMIN B-12 [Concomitant]
     Indication: PRODUCT USED FOR UNKNOWN INDICATION
  9. CALCIUM [Concomitant]
     Indication: PRODUCT USED FOR UNKNOWN INDICATION
  10. VITAMIN D [Concomitant]
     Indication: PRODUCT USED FOR UNKNOWN INDICATION
  11. MULTIPLE VITMIN [Concomitant]
     Indication: PRODUCT USED FOR UNKNOWN INDICATION
  12. PROBIOTIC [Concomitant]
     Indication: PRODUCT USED FOR UNKNOWN INDICATION
  13. FISH OIL [Concomitant]
     Indication: PRODUCT USED FOR UNKNOWN INDICATION
  14. ALLEGRA [Concomitant]
     Indication: PRODUCT USED FOR UNKNOWN INDICATION

REACTIONS (6)
  - Deep vein thrombosis [Recovering/Resolving]
  - Dyspnoea [Recovered/Resolved]
  - Nausea [Recovered/Resolved]
  - Fatigue [Recovered/Resolved]
  - Abdominal pain [Recovered/Resolved]
  - Injection site reaction [Recovered/Resolved]
